FAERS Safety Report 4944921-X (Version None)
Quarter: 2006Q1

REPORT INFORMATION
  Report Type: 
  Country: None (occurrence: None)
  Receive Date: 20060315
  Receipt Date: 20051207
  Transmission Date: 20060701
  Serious: Yes (Hospitalization)
  Sender: FDA-Public Use
  Company Number: US-MERCK-0512USA01351

PATIENT
  Age: 53 Year
  Sex: Female
  Weight: 70 kg

DRUGS (1)
  1. VIOXX [Suspect]
     Indication: ARTHRITIS
     Route: 048
     Dates: start: 19990706, end: 20030607

REACTIONS (13)
  - ACUTE MYOCARDIAL INFARCTION [None]
  - ACUTE RESPIRATORY FAILURE [None]
  - ANAEMIA [None]
  - ANOXIC ENCEPHALOPATHY [None]
  - AZOTAEMIA [None]
  - CARDIAC FAILURE CONGESTIVE [None]
  - CEREBRAL ISCHAEMIA [None]
  - CHRONIC OBSTRUCTIVE PULMONARY DISEASE [None]
  - DILATATION ATRIAL [None]
  - HYPERKALAEMIA [None]
  - HYPERTENSIVE CARDIOMYOPATHY [None]
  - LUNG INFILTRATION [None]
  - PYREXIA [None]
